FAERS Safety Report 23269158 (Version 2)
Quarter: 2023Q4

REPORT INFORMATION
  Report Type: Spontaneous
  Country: US (occurrence: US)
  Receive Date: 20231207
  Receipt Date: 20231207
  Transmission Date: 20240109
  Serious: No
  Sender: FDA-Public Use
  Company Number: AP-2023-US-5340

PATIENT
  Age: 67 Year
  Sex: Female

DRUGS (1)
  1. CROMOLYN SODIUM [Suspect]
     Active Substance: CROMOLYN SODIUM
     Indication: Mast cell activation syndrome
     Route: 048
     Dates: start: 20230602

REACTIONS (2)
  - Recalled product administered [Unknown]
  - Drug ineffective [Unknown]
